FAERS Safety Report 6504868-4 (Version None)
Quarter: 2009Q4

REPORT INFORMATION
  Report Type: 
  Country: None (occurrence: None)
  Receive Date: 20091201
  Receipt Date: 20090916
  Transmission Date: 20100525
  Serious: Yes (Hospitalization)
  Sender: FDA-Public Use
  Company Number: 2009-200460-NL

PATIENT
  Age: 39 Year
  Sex: Female
  Weight: 79.3795 kg

DRUGS (5)
  1. NUVARING [Suspect]
     Indication: CONTRACEPTION
     Dates: start: 20071201, end: 20080801
  2. TOPAMAX [Concomitant]
  3. ZOLOFT [Concomitant]
  4. PRILOSEC [Concomitant]
  5. CLARITIN [Concomitant]

REACTIONS (2)
  - CHEST PAIN [None]
  - DEEP VEIN THROMBOSIS [None]
